FAERS Safety Report 5366104-4 (Version None)
Quarter: 2007Q2

REPORT INFORMATION
  Report Type: 
  Country: None (occurrence: None)
  Receive Date: 20070611
  Receipt Date: 20061218
  Transmission Date: 20071010
  Serious: Yes (Death)
  Sender: FDA-Public Use
  Company Number: USA-2006-0024821

PATIENT
  Age: 25 Year
  Sex: Male
  Weight: 104.3 kg

DRUGS (2)
  1. OXYCONTIN [Suspect]
     Indication: DRUG ABUSER
     Dosage: INHALATION
     Route: 055
     Dates: start: 20060705
  2. QUETIAPINE FUMARATE [Suspect]
     Indication: DRUG USE FOR UNKNOWN INDICATION

REACTIONS (8)
  - ACCIDENTAL OVERDOSE [None]
  - CARDIAC ARREST [None]
  - CARDIAC FAILURE [None]
  - INTENTIONAL DRUG MISUSE [None]
  - NERVOUS SYSTEM DISORDER [None]
  - RESPIRATORY ARREST [None]
  - RESPIRATORY FAILURE [None]
  - UNRESPONSIVE TO STIMULI [None]
